FAERS Safety Report 20475248 (Version 3)
Quarter: 2022Q2

REPORT INFORMATION
  Report Type: Report from Study
  Country: US (occurrence: US)
  Receive Date: 20220215
  Receipt Date: 20220519
  Transmission Date: 20220721
  Serious: Yes (Other)
  Sender: FDA-Public Use
  Company Number: US-INCYTE CORPORATION-2022IN001359

PATIENT

DRUGS (1)
  1. JAKAFI [Suspect]
     Active Substance: RUXOLITINIB
     Indication: Chronic graft versus host disease
     Dosage: UNK
     Route: 065
     Dates: end: 202108

REACTIONS (23)
  - Pulmonary fibrosis [Unknown]
  - Chronic graft versus host disease [Unknown]
  - Acute graft versus host disease [Unknown]
  - Pruritus [Unknown]
  - Skin exfoliation [Unknown]
  - Lung disorder [Unknown]
  - Dry eye [Unknown]
  - Peripheral swelling [Unknown]
  - Joint stiffness [Unknown]
  - Skin fragility [Unknown]
  - Skin tightness [Unknown]
  - Eye pain [Unknown]
  - Rash [Unknown]
  - Pain in extremity [Unknown]
  - Dyspnoea exertional [Unknown]
  - Dyspnoea [Unknown]
  - Condition aggravated [Unknown]
  - Joint swelling [Unknown]
  - Fibrosis [Unknown]
  - Arthropathy [Unknown]
  - Gait disturbance [Unknown]
  - Dysstasia [Unknown]
  - Off label use [Unknown]
